FAERS Safety Report 6464175-5 (Version None)
Quarter: 2009Q4

REPORT INFORMATION
  Report Type: 
  Country: None (occurrence: None)
  Receive Date: 20091201
  Receipt Date: 20091116
  Transmission Date: 20100525
  Serious: Yes (Life-Threatening, Hospitalization, Other)
  Sender: FDA-Public Use
  Company Number: GB-ROCHE-412502

PATIENT
  Age: 59 Year
  Sex: Female
  Weight: 80 kg

DRUGS (6)
  1. ORLISTAT [Suspect]
     Indication: OBESITY
     Route: 065
     Dates: start: 19990622, end: 19990914
  2. METFORMIN HCL [Interacting]
     Dosage: ALSO REPORTED THAT PATIENT RECEIVED 500MG THREE TIMES A DAY FOR THE PAST EIGHT YEARS.
     Route: 048
     Dates: start: 19940101
  3. TAGAMET [Interacting]
     Indication: ABDOMINAL PAIN UPPER
     Dosage: STRENGTH: 200MG/2ML.
     Route: 048
     Dates: start: 19990814
  4. CO-AMILOFRUSE [Concomitant]
     Route: 048
     Dates: start: 19940101
  5. ASPIRIN [Concomitant]
     Route: 048
     Dates: start: 19940101
  6. SODIUM BICARBONATE IN PLASTIC CONTAINER [Concomitant]

REACTIONS (14)
  - ABDOMINAL PAIN [None]
  - ASTHENIA [None]
  - CIRCULATORY COLLAPSE [None]
  - DEPRESSED LEVEL OF CONSCIOUSNESS [None]
  - DIARRHOEA [None]
  - DIZZINESS [None]
  - DRUG INTERACTION [None]
  - DRUG LEVEL INCREASED [None]
  - DYSARTHRIA [None]
  - LACTIC ACIDOSIS [None]
  - RENAL FAILURE ACUTE [None]
  - SHOCK [None]
  - VISION BLURRED [None]
  - VOMITING [None]
